FAERS Safety Report 8312587-7 (Version None)
Quarter: 2012Q2

REPORT INFORMATION
  Report Type: 
  Country: None (occurrence: None)
  Receive Date: 20120425
  Receipt Date: 20120425
  Transmission Date: 20120825
  Serious: Yes (Hospitalization)
  Sender: FDA-Public Use
  Company Number: None

PATIENT
  Age: 55 Year
  Sex: Male
  Weight: 61.7 kg

DRUGS (14)
  1. OXYCONTIN [Concomitant]
  2. NEXAVAR [Suspect]
     Indication: HEPATIC NEOPLASM MALIGNANT
     Dosage: 400MG EVERY OTHER DAY
     Dates: start: 20110711
  3. PREVACID [Concomitant]
  4. OXYCODONE HCL [Concomitant]
  5. COMPAZINE [Concomitant]
  6. LACTULOSE [Concomitant]
  7. XANAX [Concomitant]
  8. DOXORUBICIN HCL [Suspect]
     Indication: HEPATIC NEOPLASM MALIGNANT
     Dosage: 100MG LC BEADS INTRAART
     Route: 013
     Dates: start: 20110811
  9. DOXORUBICIN HCL [Suspect]
     Indication: HEPATIC NEOPLASM MALIGNANT
     Dosage: 100MG LC BEADS INTRAART
     Route: 013
     Dates: start: 20120211
  10. DOXORUBICIN HCL [Suspect]
     Indication: HEPATIC NEOPLASM MALIGNANT
     Dosage: 100MG LC BEADS INTRAART
     Route: 013
     Dates: start: 20110711
  11. DOXORUBICIN HCL [Suspect]
     Indication: HEPATIC NEOPLASM MALIGNANT
     Dosage: 100MG LC BEADS INTRAART
     Route: 013
     Dates: start: 20120321
  12. LISINOPRIL [Concomitant]
  13. METOPROLOL TARTRATE [Concomitant]
  14. OXYCODONE HCL [Concomitant]

REACTIONS (1)
  - UNRESPONSIVE TO STIMULI [None]
